FAERS Safety Report 25280161 (Version 2)
Quarter: 2025Q3

REPORT INFORMATION
  Report Type: Spontaneous
  Country: JP (occurrence: JP)
  Receive Date: 20250507
  Receipt Date: 20250804
  Transmission Date: 20251021
  Serious: Yes (Other)
  Sender: MERCK SHARP & DOHME LLC
  Company Number: JP-009507513-2283335

PATIENT
  Age: 8 Decade
  Sex: Male

DRUGS (2)
  1. KEYTRUDA [Suspect]
     Active Substance: PEMBROLIZUMAB
     Indication: Transitional cell carcinoma
     Dosage: 200 MG, EVERY 3 WEEKS (8 COURSES)
     Route: 041
     Dates: start: 202412
  2. PADCEV [Suspect]
     Active Substance: ENFORTUMAB VEDOTIN-EJFV
     Indication: Transitional cell carcinoma
     Dosage: 1.25MG/KG 2 TIMES, EVERY 3 WEEKS (DAY1 DAY 8)
     Route: 041
     Dates: start: 202412

REACTIONS (8)
  - Neuropathy peripheral [Not Recovered/Not Resolved]
  - Therapy partial responder [Unknown]
  - Palmar-plantar erythrodysaesthesia syndrome [Recovering/Resolving]
  - Rash [Unknown]
  - Conjunctival hyperaemia [Not Recovered/Not Resolved]
  - Alopecia [Unknown]
  - Glaucoma [Unknown]
  - Pruritus [Unknown]

NARRATIVE: CASE EVENT DATE: 20250101
